FAERS Safety Report 16059490 (Version 3)
Quarter: 2019Q1

REPORT INFORMATION
  Report Type: Report from Study
  Country: US (occurrence: US)
  Receive Date: 20190311
  Receipt Date: 20190315
  Transmission Date: 20190418
  Serious: Yes (Hospitalization)
  Sender: FDA-Public Use
  Company Number: US-ACTELION-A-US2015-122012

PATIENT
  Age: 74 Year
  Sex: Female

DRUGS (3)
  1. BUDESONIDE. [Concomitant]
     Active Substance: BUDESONIDE
     Dosage: 5 MG/2ML BID
  2. TRACLEER [Suspect]
     Active Substance: BOSENTAN
     Indication: PULMONARY ARTERIAL HYPERTENSION
     Dosage: 125 MG, BID
     Route: 048
  3. TRACLEER [Suspect]
     Active Substance: BOSENTAN
     Dosage: 125 MG, BID
     Route: 048

REACTIONS (16)
  - Arthritis [Unknown]
  - Dysphonia [Unknown]
  - Sputum discoloured [Unknown]
  - Nasopharyngitis [Unknown]
  - Asthenia [Unknown]
  - Atrial fibrillation [Unknown]
  - Oropharyngeal pain [Unknown]
  - Productive cough [Unknown]
  - Viral infection [Unknown]
  - Lung disorder [Unknown]
  - Unevaluable event [Unknown]
  - Headache [Unknown]
  - Pneumonia [Unknown]
  - Respiratory tract congestion [Unknown]
  - Nasal congestion [Unknown]
  - Insomnia [Unknown]

NARRATIVE: CASE EVENT DATE: 201710
